FAERS Safety Report 4384398-9 (Version None)
Quarter: 2004Q2

REPORT INFORMATION
  Report Type: 
  Country: None (occurrence: None)
  Receive Date: 20040621
  Receipt Date: 20040603
  Transmission Date: 20050107
  Serious: Yes (Hospitalization)
  Sender: FDA-Public Use
  Company Number: 2004IM000283

PATIENT
  Age: 73 Year
  Sex: Female

DRUGS (4)
  1. ADVAFERON (A643_INTERFERON ALFACON-1) [Suspect]
     Indication: HEPATITIS C
     Dosage: 18 MU; QD; SUBCUTANEOUS
     Route: 058
     Dates: start: 20020304, end: 20020626
  2. URSODEOXYCHOLIC ACID [Concomitant]
  3. ETIZOLAM [Concomitant]
  4. HACHIMIJIO-GAN [Concomitant]

REACTIONS (4)
  - CONDITION AGGRAVATED [None]
  - HEPATITIS C [None]
  - MALAISE [None]
  - MYASTHENIA GRAVIS [None]
